FAERS Safety Report 4319166-7 (Version None)
Quarter: 2004Q1

REPORT INFORMATION
  Report Type: 
  Country: None (occurrence: None)
  Receive Date: 20040316
  Receipt Date: 20040301
  Transmission Date: 20041129
  Serious: Yes (Other)
  Sender: FDA-Public Use
  Company Number: JP_040202621

PATIENT
  Age: 79 Year
  Sex: Female
  Weight: 45 kg

DRUGS (2)
  1. ZYPREXA [Suspect]
     Indication: SCHIZOPHRENIA
     Dosage: 15 MG/1 DAY
     Dates: start: 20030704, end: 20040203
  2. FURSENNID (SENNA LEAF) [Concomitant]

REACTIONS (9)
  - ALANINE AMINOTRANSFERASE INCREASED [None]
  - ASPARTATE AMINOTRANSFERASE INCREASED [None]
  - BILE DUCT STONE [None]
  - BILIARY DILATATION [None]
  - CHOLELITHIASIS [None]
  - CONSTIPATION [None]
  - OEDEMA PERIPHERAL [None]
  - PNEUMONIA [None]
  - TUMOUR MARKER INCREASED [None]
